FAERS Safety Report 10930507 (Version 1)
Quarter: 2015Q1

REPORT INFORMATION
  Report Type: Spontaneous
  Country: US (occurrence: None)
  Receive Date: 20150317
  Receipt Date: 20150317
  Transmission Date: 20150721
  Serious: No
  Sender: FDA-Public Use
  Company Number: 2015AKN00140

PATIENT
  Sex: Female

DRUGS (1)
  1. ISOTRETINOIN (ISOTRETINOIN) UNKNOWN [Suspect]
     Active Substance: ISOTRETINOIN
     Dates: start: 20140301, end: 20141208

REACTIONS (1)
  - Maternal exposure before pregnancy [None]
